FAERS Safety Report 9036159 (Version 1)
Quarter: 2013Q1

REPORT INFORMATION
  Report Type: Spontaneous
  Country: DK (occurrence: None)
  Receive Date: 20130116
  Receipt Date: 20130116
  Transmission Date: 20140127
  Serious: Yes (Other)
  Sender: FDA-Public Use
  Company Number: 2013MA000427

PATIENT
  Age: 52 Year
  Sex: Male

DRUGS (4)
  1. IRINOTECAN HYDROCHLORIDE INJECTION, 20MG/ML (40MG/2ML AND 200MG/ML) (ATTLC) (IRINOTECAN) [Suspect]
     Indication: CHEMOTHERAPY
  2. OXALIPLATIN FOR INJECTION USP 100MG SINGLE-DOSE VIALS (ATLLC) (XALIPLATIN) [Suspect]
     Indication: CHEMOTHERAPY
  3. FLUOROURACIL (FLUOROURACIL) [Suspect]
     Indication: CHEMOTHERAPY
  4. CALCIUM FOLINATE (CALCIUM FOLINATE) [Suspect]
     Indication: CHEMOTHERAPY

REACTIONS (1)
  - Myocardial infarction [None]
